FAERS Safety Report 8794360 (Version 1)
Quarter: 2012Q4

REPORT INFORMATION
  Report Type: 
  Country: NL (occurrence: NL)
  Receive Date: 20120917
  Receipt Date: 20120917
  Transmission Date: 20130627
  Serious: Yes (Other)
  Sender: FDA-Public Use
  Company Number: PHHY2012NL079420

PATIENT

DRUGS (2)
  1. PHENPROCOUMON [Suspect]
     Indication: ATRIAL FIBRILLATION
  2. CO-TRIMOXAZOLE [Interacting]
     Indication: URINARY TRACT INFECTION

REACTIONS (3)
  - Gastrointestinal haemorrhage [Unknown]
  - International normalised ratio increased [Unknown]
  - Drug interaction [Unknown]
